FAERS Safety Report 23797000 (Version 1)
Quarter: 2024Q2

REPORT INFORMATION
  Report Type: Report from Study
  Country: JP (occurrence: JP)
  Receive Date: 20240430
  Receipt Date: 20240430
  Transmission Date: 20240716
  Serious: Yes (Other)
  Sender: FDA-Public Use
  Company Number: JP-CELLTRION INC.-2020JP024595

PATIENT

DRUGS (11)
  1. INFLIXIMAB-DYYB [Suspect]
     Active Substance: INFLIXIMAB-DYYB
     Indication: Crohn^s disease
     Dosage: 280 MG (PATIENT WEIGHT: 55.6 KG)
     Route: 041
     Dates: start: 20181209, end: 20181209
  2. INFLIXIMAB-DYYB [Suspect]
     Active Substance: INFLIXIMAB-DYYB
     Dosage: 280 MG (PATIENT WEIGHT: 56 KG)
     Route: 041
     Dates: start: 20190203, end: 20190203
  3. INFLIXIMAB-DYYB [Suspect]
     Active Substance: INFLIXIMAB-DYYB
     Dosage: 280 MG (PATIENT WEIGHT: 56 KG)
     Route: 041
     Dates: start: 20190324, end: 20190324
  4. INFLIXIMAB-DYYB [Suspect]
     Active Substance: INFLIXIMAB-DYYB
     Dosage: 285 MG (PATIENT WEIGHT: 56.7 KG)
     Route: 041
     Dates: start: 20190526, end: 20190526
  5. INFLIXIMAB-DYYB [Suspect]
     Active Substance: INFLIXIMAB-DYYB
     Dosage: 280 MG (PATIENT WEIGHT: 56 KG)
     Route: 041
     Dates: start: 20191109, end: 20191109
  6. INFLIXIMAB-DYYB [Suspect]
     Active Substance: INFLIXIMAB-DYYB
     Dosage: 290 MG (PATIENT WEIGHT: 58 KG)
     Route: 041
     Dates: start: 20201129, end: 20201129
  7. INFLIXIMAB-DYYB [Suspect]
     Active Substance: INFLIXIMAB-DYYB
     Dosage: 295 MG (PATIENT WEIGHT: 59 KG)
     Route: 041
     Dates: start: 20211226, end: 20211226
  8. INFLIXIMAB-DYYB [Suspect]
     Active Substance: INFLIXIMAB-DYYB
     Dosage: 570 MG (WEIGHT: 56.5 KG)
     Route: 041
     Dates: start: 20230115, end: 20230115
  9. INFLIXIMAB-DYYB [Suspect]
     Active Substance: INFLIXIMAB-DYYB
     Dosage: 590 MG (WEIGHT: 58.8 KG)
     Route: 041
     Dates: start: 20231224, end: 20231224
  10. AZATHIOPRINE [Concomitant]
     Active Substance: AZATHIOPRINE
     Dosage: 50 MILLIGRAM/DAY
     Route: 048
  11. MESALAMINE [Concomitant]
     Active Substance: MESALAMINE
     Dosage: 2000 MILLIGRAM/DAY
     Route: 048

REACTIONS (7)
  - Cataract [Not Recovered/Not Resolved]
  - Seasonal allergy [Unknown]
  - Chronic gastritis [Not Recovered/Not Resolved]
  - Abdominal pain [Unknown]
  - Hypoaesthesia [Not Recovered/Not Resolved]
  - Overdose [Unknown]
  - Intentional product use issue [Unknown]

NARRATIVE: CASE EVENT DATE: 20181209
